FAERS Safety Report 8932743 (Version 1)
Quarter: 2012Q4

REPORT INFORMATION
  Report Type: 
  Country: DE (occurrence: DE)
  Receive Date: 20121129
  Receipt Date: 20121129
  Transmission Date: 20130627
  Serious: Yes (Other)
  Sender: FDA-Public Use
  Company Number: DE-JNJFOC-20121112251

PATIENT
  Age: 4 None
  Sex: Male

DRUGS (3)
  1. SIMPONI [Suspect]
     Indication: JUVENILE ARTHRITIS
     Route: 058
  2. AZATHIOPRINE [Concomitant]
     Route: 065
  3. ATORVASTATIN CALCIUM [Concomitant]
     Route: 065

REACTIONS (3)
  - Secondary amyloidosis [Unknown]
  - C-reactive protein increased [Unknown]
  - Off label use [Unknown]
